FAERS Safety Report 4654346-2 (Version None)
Quarter: 2005Q2

REPORT INFORMATION
  Report Type: 
  Country: None (occurrence: None)
  Receive Date: 20050404
  Receipt Date: 20041229
  Transmission Date: 20051028
  Serious: No
  Sender: FDA-Public Use
  Company Number: USA041287137

PATIENT
  Age: 57 Year
  Sex: Male
  Weight: 120 kg

DRUGS (7)
  1. CYMBALTA [Suspect]
     Indication: DIABETIC NEUROPATHY
     Dosage: 60 MG DAY
     Dates: start: 20041220
  2. ACTOS [Concomitant]
  3. NEURONTIN (GABAPENTIN PFIZER) [Concomitant]
  4. SYNTHROID [Concomitant]
  5. DIGITEK (DIGOXIN STREULI) [Concomitant]
  6. LIPITOR [Concomitant]
  7. MINOCYCLINE [Concomitant]

REACTIONS (5)
  - ANORGASMIA [None]
  - DECREASED APPETITE [None]
  - ERECTILE DYSFUNCTION [None]
  - HYPERHIDROSIS [None]
  - TINNITUS [None]
